FAERS Safety Report 19939216 (Version 1)
Quarter: 2021Q4

REPORT INFORMATION
  Report Type: Spontaneous
  Country: GB (occurrence: GB)
  Receive Date: 20211011
  Receipt Date: 20211011
  Transmission Date: 20220303
  Serious: Yes (Other)
  Sender: FDA-Public Use
  Company Number: None

PATIENT
  Age: 58 Year
  Sex: Male

DRUGS (4)
  1. RAMIPRIL [Suspect]
     Active Substance: RAMIPRIL
     Indication: Hypertension
     Dosage: 2.5MG/5ML, 15ML EVERY NIGHT
  2. GLICLAZIDE [Suspect]
     Active Substance: GLICLAZIDE
     Indication: Diabetes mellitus
  3. METFORMIN [Suspect]
     Active Substance: METFORMIN HYDROCHLORIDE
     Indication: Diabetes mellitus
  4. RANITIDINE [Suspect]
     Active Substance: RANITIDINE
     Indication: Product used for unknown indication
     Dosage: 150MG/ML

REACTIONS (10)
  - Diabetes mellitus [Unknown]
  - Product dose omission issue [Unknown]
  - Product closure removal difficult [Unknown]
  - Product formulation issue [Unknown]
  - Mental disorder [Unknown]
  - Product storage error [Unknown]
  - Product prescribing error [Unknown]
  - Angiotensin converting enzyme increased [Unknown]
  - Renal impairment [Unknown]
  - Hypertension [Unknown]
